FAERS Safety Report 10699102 (Version 2)
Quarter: 2015Q1

REPORT INFORMATION
  Report Type: Report from Study
  Country: US (occurrence: US)
  Receive Date: 20150108
  Receipt Date: 20150108
  Transmission Date: 20150721
  Serious: Yes (Death, Hospitalization)
  Sender: FDA-Public Use
  Company Number: US-ACTELION-A-NJ2014-97516

PATIENT
  Age: 55 Year
  Sex: Female

DRUGS (9)
  1. TRACLEER [Suspect]
     Active Substance: BOSENTAN\BOSENTAN MONOHYDRATE
     Indication: PULMONARY ARTERIAL HYPERTENSION
     Dosage: 125 MG
     Route: 048
     Dates: start: 20140514, end: 20141227
  2. REMODULIN [Suspect]
     Active Substance: TREPROSTINIL
     Dosage: 12 NG/KG, PER MIN
     Route: 065
  3. REMODULIN [Suspect]
     Active Substance: TREPROSTINIL
     Dosage: 0.022 ML/HR, UNK
     Route: 065
  4. ADVAIR HFA [Concomitant]
     Active Substance: FLUTICASONE PROPIONATE\SALMETEROL XINAFOATE
  5. REMODULIN [Suspect]
     Active Substance: TREPROSTINIL
     Indication: PRODUCT USED FOR UNKNOWN INDICATION
     Dosage: 0.004 UNK, UNK
     Route: 065
     Dates: start: 20140411
  6. SPIRIVA [Concomitant]
     Active Substance: TIOTROPIUM BROMIDE MONOHYDRATE
     Dosage: 18 UNK, UNK
  7. TRACLEER [Suspect]
     Active Substance: BOSENTAN\BOSENTAN MONOHYDRATE
     Dosage: 62.5 MG, BID
     Route: 048
     Dates: start: 20130601, end: 20130630
  8. ALBUTEROL. [Concomitant]
     Active Substance: ALBUTEROL
     Dosage: 180 UNK, UNK
  9. REMODULIN [Suspect]
     Active Substance: TREPROSTINIL
     Dosage: 0.012 ML/HR, UNK
     Route: 065

REACTIONS (15)
  - Hypoxia [Recovering/Resolving]
  - Retching [Unknown]
  - Nausea [Unknown]
  - Death [Fatal]
  - Oxygen saturation decreased [Unknown]
  - Malaise [Unknown]
  - Weight decreased [Unknown]
  - Decreased appetite [Unknown]
  - Chronic obstructive pulmonary disease [Unknown]
  - Thirst [Unknown]
  - Syncope [Unknown]
  - Pneumonia [Recovering/Resolving]
  - Dyspnoea [Recovering/Resolving]
  - Headache [Unknown]
  - Vomiting [Unknown]

NARRATIVE: CASE EVENT DATE: 20140612
